FAERS Safety Report 15679218 (Version 1)
Quarter: 2018Q4

REPORT INFORMATION
  Report Type: Spontaneous
  Country: NL (occurrence: NL)
  Receive Date: 20181203
  Receipt Date: 20181203
  Transmission Date: 20190205
  Serious: Yes (Death)
  Sender: FDA-Public Use
  Company Number: NL-TEVA-2018-NL-981057

PATIENT
  Age: 12 Year
  Sex: Female

DRUGS (1)
  1. BACLOFEN. [Suspect]
     Active Substance: BACLOFEN
     Indication: MUSCLE SPASTICITY
     Dosage: PHASED OUT TO STAKES
     Dates: start: 2017, end: 2018

REACTIONS (2)
  - Withdrawal syndrome [Fatal]
  - Hyperthermia [Fatal]

NARRATIVE: CASE EVENT DATE: 20180731
